FAERS Safety Report 7987135-1 (Version None)
Quarter: 2011Q4

REPORT INFORMATION
  Report Type: 
  Country: None (occurrence: None)
  Receive Date: 20111216
  Receipt Date: 20110321
  Transmission Date: 20120403
  Serious: Yes (Hospitalization, Other)
  Sender: FDA-Public Use
  Company Number: US-BRISTOL-MYERS SQUIBB COMPANY-15622160

PATIENT
  Age: 29 Year
  Sex: Male

DRUGS (6)
  1. LOPRESSOR [Concomitant]
  2. XANAX [Concomitant]
  3. ABILIFY [Suspect]
     Dosage: REDUCED TO 5MG
     Dates: start: 20101201
  4. SEROQUEL [Concomitant]
  5. TEGRETOL [Interacting]
  6. PROZAC [Concomitant]

REACTIONS (2)
  - DRUG INTERACTION [None]
  - CONVULSION [None]
